FAERS Safety Report 4325918-X (Version None)
Quarter: 2004Q1

REPORT INFORMATION
  Report Type: 
  Country: None (occurrence: None)
  Receive Date: 20040323
  Receipt Date: 20040304
  Transmission Date: 20041129
  Serious: Yes (Death)
  Sender: FDA-Public Use
  Company Number: 20040300208

PATIENT
  Age: 89 Year
  Sex: Male

DRUGS (2)
  1. PROMETHAZINE [Suspect]
     Dosage: 25 MG ONCE IV
     Route: 042
     Dates: start: 20040301, end: 20040301
  2. HEPARIN [Concomitant]

REACTIONS (3)
  - BLOOD PRESSURE DECREASED [None]
  - COMA [None]
  - PALLOR [None]
